FAERS Safety Report 4539037-0 (Version None)
Quarter: 2004Q4

REPORT INFORMATION
  Report Type: 
  Country: None (occurrence: None)
  Receive Date: 20041222
  Receipt Date: 20041206
  Transmission Date: 20050328
  Serious: Yes (Death)
  Sender: FDA-Public Use
  Company Number: AZAUS200400228

PATIENT

DRUGS (1)
  1. VIDAZA [Suspect]
     Dates: start: 20040101, end: 20040101

REACTIONS (2)
  - BLOOD CREATININE INCREASED [None]
  - MYOCARDIAL INFARCTION [None]
